FAERS Safety Report 4784911-3 (Version None)
Quarter: 2005Q3

REPORT INFORMATION
  Report Type: 
  Country: None (occurrence: None)
  Receive Date: 20050930
  Receipt Date: 20050720
  Transmission Date: 20060218
  Serious: Yes (Life-Threatening, Hospitalization)
  Sender: FDA-Public Use
  Company Number: JP-NOVOPROD-245732

PATIENT
  Age: 73 Year
  Sex: Male
  Weight: 68 kg

DRUGS (4)
  1. URSODIOL [Concomitant]
     Indication: HEPATIC CIRRHOSIS
     Dosage: 600 MG, QD
  2. NOVORAPID 30 MIX CHU FLEXPEN [Suspect]
     Indication: INSULIN-REQUIRING TYPE II DIABETES MELLITUS
     Dosage: 32 IU, QD
     Route: 058
     Dates: start: 20050608, end: 20050705
  3. NOVORAPID 30 MIX CHU FLEXPEN [Suspect]
     Dosage: 36 IU, QD
     Route: 058
     Dates: start: 20050706, end: 20050720
  4. PURSENNID                               /SCH/ [Concomitant]
     Indication: CONSTIPATION
     Dosage: UNK, UNK
     Route: 048

REACTIONS (1)
  - IDIOPATHIC THROMBOCYTOPENIC PURPURA [None]
